FAERS Safety Report 8326732 (Version 2)
Quarter: 2012Q4

REPORT INFORMATION
  Report Type: 
  Country: US (occurrence: None)
  Receive Date: 20111229
  Receipt Date: 20121121
  Transmission Date: 20130627
  Serious: Yes (Hospitalization, Other)
  Sender: FDA-Public Use
  Company Number: 2011-000043

PATIENT
  Age: 85 Year
  Sex: Female

DRUGS (10)
  1. ACTONEL [Suspect]
     Indication: OSTEOPOROSIS
     Dosage: DOSAGE/FREQUENCY, ORAL
     Route: 048
     Dates: start: 200911, end: 201004
  2. ALENDRONATE SODIUM [Suspect]
     Indication: OSTEOPOROSIS
     Dosage: DOSAGE/REGIMEN UNKNOWN, ORAL
     Route: 048
  3. FOSAMAX PLUS D [Suspect]
     Indication: OSTEOPOROSIS
     Dosage: DOSAGE/FREQUENCY UNKNOWN, ORAL
     Route: 048
  4. BONIVA [Suspect]
     Indication: OSTEOPOROSIS
     Dosage: DOSAGE/FREQUENCY UNKNOWN, ORAL
     Route: 048
     Dates: start: 20070503
  5. FOSAMAX [Concomitant]
     Indication: OSTEOPOROSIS
     Dosage: DOSAGE/REGIMEN UNKNOWN, ORAL
     Route: 048
     Dates: start: 200012, end: 2005
  6. FOSAMAX [Concomitant]
     Indication: OSTEOPOROSIS
     Route: 048
     Dates: start: 20000829, end: 20001204
  7. LYRICA (PREGABALIN) [Concomitant]
  8. NEURONTIN (GABAPENTIN) [Concomitant]
  9. CYMBALTA (DULOXETINE HYDROCHLORIDE) [Concomitant]
  10. METOPROLOL (METOPROLOL) [Concomitant]

REACTIONS (11)
  - Femur fracture [None]
  - Stress fracture [None]
  - Comminuted fracture [None]
  - Fracture displacement [None]
  - Arthralgia [None]
  - Fall [None]
  - Postoperative wound infection [None]
  - Limb asymmetry [None]
  - Low turnover osteopathy [None]
  - Skeletal injury [None]
  - Pain [None]
